FAERS Safety Report 16426930 (Version 1)
Quarter: 2019Q3

REPORT INFORMATION
  Report Type: Spontaneous
  Country: US (occurrence: US)
  Receive Date: 20190612
  Receipt Date: 20190612
  Transmission Date: 20191004
  Serious: Yes (Hospitalization)
  Sender: FDA-Public Use
  Company Number: None

PATIENT
  Age: 56 Year
  Sex: Female
  Weight: 86.9 kg

DRUGS (3)
  1. ZONISAMIDE 500 MG PO DAILY [Concomitant]
  2. BRIVARACETAM [Suspect]
     Active Substance: BRIVARACETAM
     Indication: SEIZURE
     Route: 048
     Dates: start: 20190513, end: 20190530
  3. DICLOFENAC 75 MG ER PO DAILY PRN PAIN [Concomitant]

REACTIONS (4)
  - Acute psychosis [None]
  - Hallucination, auditory [None]
  - Suicidal ideation [None]
  - Aggression [None]

NARRATIVE: CASE EVENT DATE: 20190530
